FAERS Safety Report 9490460 (Version 1)
Quarter: 2013Q3

REPORT INFORMATION
  Report Type: Spontaneous
  Country: JP (occurrence: None)
  Receive Date: 20130823
  Receipt Date: 20130823
  Transmission Date: 20140515
  Serious: Yes (Hospitalization, Other)
  Sender: FDA-Public Use
  Company Number: 2010JP000959

PATIENT
  Age: 9 Year
  Sex: Male

DRUGS (16)
  1. PROGRAF [Suspect]
     Indication: PROPHYLAXIS AGAINST GRAFT VERSUS HOST DISEASE
     Route: 041
     Dates: start: 20091201
  2. PROGRAF [Suspect]
     Indication: GRAFT VERSUS HOST DISEASE
     Route: 041
     Dates: start: 20091201
  3. CICLOSPORIN [Suspect]
     Indication: IMMUNOSUPPRESSANT DRUG THERAPY
     Dates: start: 2008
  4. METHOTREXATE [Suspect]
     Indication: PROPHYLAXIS AGAINST GRAFT VERSUS HOST DISEASE
     Dates: start: 20091201
  5. METHOTREXATE [Suspect]
     Indication: GRAFT VERSUS HOST DISEASE
     Dates: start: 20091201
  6. DORMICUM (MIDAZOLAM) [Concomitant]
  7. FLUDARA (FLUDARABINE PHOSPHATE) [Concomitant]
  8. ALKERAN /00006401/ (MELPHALAN) [Concomitant]
  9. THYMOGLOBULINE (ANTITHYMOCYTE IMMUNOGLOBULIN (RABBIT)) [Concomitant]
  10. ENDOXAN /00021101/ (CYCLOPHOSPHAMIDE) [Concomitant]
  11. PREDNISOLONE [Concomitant]
  12. RECOMODULIN (THROMBOMODULIN ALFA) [Concomitant]
  13. DIAZEPAM [Concomitant]
  14. NIFEDIPINE [Concomitant]
  15. ISOSORBIDE DINITRATE [Concomitant]
  16. PHENOBARBITAL [Concomitant]

REACTIONS (19)
  - Drug ineffective [None]
  - Graft versus host disease in liver [None]
  - Graft versus host disease in skin [None]
  - Graft versus host disease in intestine [None]
  - Posterior reversible encephalopathy syndrome [None]
  - Thrombotic microangiopathy [None]
  - Convulsion [None]
  - Bone marrow transplant [None]
  - Biliary tract disorder [None]
  - Coagulopathy [None]
  - Haemolysis [None]
  - Diarrhoea [None]
  - Headache [None]
  - Loss of consciousness [None]
  - Respiratory depression [None]
  - Sedation [None]
  - Status epilepticus [None]
  - Mental retardation [None]
  - Cerebral atrophy [None]
